FAERS Safety Report 22824672 (Version 3)
Quarter: 2024Q4

REPORT INFORMATION
  Report Type: Spontaneous
  Country: US (occurrence: US)
  Receive Date: 20230815
  Receipt Date: 20241115
  Transmission Date: 20250115
  Serious: No
  Sender: ANI
  Company Number: US-ANIPHARMA-2023-US-021950

PATIENT
  Age: 60 Year
  Sex: Female
  Weight: 103.42 kg

DRUGS (11)
  1. CORTICOTROPIN [Suspect]
     Active Substance: CORTICOTROPIN
     Indication: Multiple sclerosis
     Dosage: INJECT 1 ML (80 UNITS) UNDER THE SKIN TWICE A WEEK (DISCARD 28 DAYS AFTER INITIAL USE)
     Route: 058
  2. XANAX [Concomitant]
     Active Substance: ALPRAZOLAM
     Route: 065
  3. ZOFRAN [Concomitant]
     Active Substance: ONDANSETRON HYDROCHLORIDE
     Route: 065
  4. BENLYSTA [Concomitant]
     Active Substance: BELIMUMAB
     Route: 065
  5. CITRACAL-D3 [Concomitant]
     Route: 065
  6. LIDOCAINE HYDROCHLORIDE [Concomitant]
     Active Substance: LIDOCAINE HYDROCHLORIDE
     Route: 065
  7. PENNSAID [Concomitant]
     Active Substance: DICLOFENAC SODIUM
     Route: 065
  8. RECLAST [Concomitant]
     Active Substance: ZOLEDRONIC ACID
     Route: 065
  9. REPAGLINIDE [Concomitant]
     Active Substance: REPAGLINIDE
     Route: 065
  10. TACROLIMUS [Concomitant]
     Active Substance: TACROLIMUS
     Route: 065
  11. VITAMIN D2 [Concomitant]
     Active Substance: ERGOCALCIFEROL
     Route: 065

REACTIONS (3)
  - Contraindicated product administered [Unknown]
  - Malaise [Not Recovered/Not Resolved]
  - Injection site haemorrhage [Unknown]
